FAERS Safety Report 6041231-7 (Version None)
Quarter: 2009Q1

REPORT INFORMATION
  Report Type: 
  Country: None (occurrence: None)
  Receive Date: 20090116
  Receipt Date: 20080919
  Transmission Date: 20090719
  Serious: No
  Sender: FDA-Public Use
  Company Number: US-BRISTOL-MYERS SQUIBB COMPANY-14341499

PATIENT
  Age: 54 Year
  Sex: Male
  Weight: 118 kg

DRUGS (4)
  1. ABILIFY [Suspect]
     Indication: BIPOLAR I DISORDER
     Dates: start: 20080901
  2. LITHIUM [Concomitant]
  3. AMITRIPTYLINE HCL [Concomitant]
  4. AMBIEN [Concomitant]

REACTIONS (1)
  - ERECTILE DYSFUNCTION [None]
